FAERS Safety Report 4853897-5 (Version None)
Quarter: 2005Q4

REPORT INFORMATION
  Report Type: 
  Country: None (occurrence: None)
  Receive Date: 20051213
  Receipt Date: 20051130
  Transmission Date: 20060501
  Serious: Yes (Hospitalization)
  Sender: FDA-Public Use
  Company Number: 219937

PATIENT
  Age: 68 Year
  Sex: Male

DRUGS (4)
  1. AVASTIN [Suspect]
     Indication: COLON CANCER
     Dosage: 5 MG/M2, Q2W, INTRAVENOUS
     Route: 042
     Dates: start: 20041209, end: 20051020
  2. OXALIPLATIN (OXALIPLATIN) [Suspect]
     Indication: COLON CANCER
     Dosage: 85 MG/M2
  3. FLUOROURACIL [Suspect]
     Indication: COLON CANCER
     Dosage: SEE IMAGE
     Route: 042
  4. LEUCOVORIN CALCIUM [Suspect]
     Indication: COLON CANCER
     Dosage: 400 MG/M2

REACTIONS (7)
  - ABDOMINAL DISCOMFORT [None]
  - ASTHENIA [None]
  - BUTTOCK PAIN [None]
  - NECROTISING FASCIITIS [None]
  - SCROTAL OEDEMA [None]
  - SEPSIS [None]
  - SKIN INFLAMMATION [None]
